FAERS Safety Report 13785970 (Version 1)
Quarter: 2017Q3

REPORT INFORMATION
  Report Type: Spontaneous
  Country: US (occurrence: US)
  Receive Date: 20170725
  Receipt Date: 20170725
  Transmission Date: 20171127
  Serious: Yes (Hospitalization)
  Sender: FDA-Public Use
  Company Number: None

PATIENT
  Age: 18 Year
  Sex: Female
  Weight: 104 kg

DRUGS (10)
  1. DAUNORUBICIN [Suspect]
     Active Substance: DAUNORUBICIN
     Dates: end: 20120605
  2. MERCAPTOPURINE. [Suspect]
     Active Substance: MERCAPTOPURINE
     Dates: end: 20140820
  3. HYDROCORTISONE. [Suspect]
     Active Substance: HYDROCORTISONE
     Dates: end: 20140506
  4. METHOTREXATE. [Suspect]
     Active Substance: METHOTREXATE
     Dates: end: 20140506
  5. VINCRISTINE SULFATE. [Concomitant]
     Active Substance: VINCRISTINE SULFATE
     Dates: end: 20140506
  6. CYCLOPHOSPHAMIDE. [Suspect]
     Active Substance: CYCLOPHOSPHAMIDE
     Dates: end: 20120717
  7. DOXORUBICIN HYDROCHLORIDE. [Suspect]
     Active Substance: DOXORUBICIN HYDROCHLORIDE
     Dates: end: 20121105
  8. ONCASPAR [Suspect]
     Active Substance: PEGASPARGASE
     Dates: end: 20121025
  9. CYTARABINE. [Suspect]
     Active Substance: CYTARABINE
     Dates: end: 20140506
  10. PREDNISONE. [Suspect]
     Active Substance: PREDNISONE
     Dates: end: 20140712

REACTIONS (13)
  - Sepsis [None]
  - Cough [None]
  - Haematocrit decreased [None]
  - Infection in an immunocompromised host [None]
  - Lung infection [None]
  - Haemoglobin decreased [None]
  - Respiratory distress [None]
  - Pyrexia [None]
  - Tachycardia [None]
  - Lung infiltration [None]
  - Malaise [None]
  - Haemoptysis [None]
  - Platelet count decreased [None]

NARRATIVE: CASE EVENT DATE: 20170711
